FAERS Safety Report 6052001-8 (Version None)
Quarter: 2009Q1

REPORT INFORMATION
  Report Type: 
  Country: None (occurrence: None)
  Receive Date: 20090126
  Receipt Date: 20090119
  Transmission Date: 20090719
  Serious: Yes (Other)
  Sender: FDA-Public Use
  Company Number: FR-ASTRAZENECA-2009CG00223

PATIENT
  Age: 24565 Day
  Sex: Female

DRUGS (11)
  1. HYTACAND [Suspect]
     Route: 048
     Dates: end: 20081123
  2. KETOPROFEN [Interacting]
     Route: 048
     Dates: start: 20081121, end: 20081123
  3. PHYSIOTENS [Concomitant]
     Route: 048
     Dates: end: 20081123
  4. MORPHINE [Concomitant]
     Dosage: AS REQUIRED
     Dates: start: 20081121
  5. LYRICA [Concomitant]
     Dates: start: 20081121
  6. VASTAREL [Concomitant]
  7. APIDRA [Concomitant]
  8. LANTUS [Concomitant]
  9. NOVOLOG MIX 70/30 [Concomitant]
  10. PRAVASTATIN [Concomitant]
  11. PREVISCAN [Concomitant]

REACTIONS (2)
  - DRUG INTERACTION [None]
  - RENAL FAILURE ACUTE [None]
